FAERS Safety Report 24593301 (Version 4)
Quarter: 2025Q4

REPORT INFORMATION
  Report Type: Spontaneous
  Country: US (occurrence: US)
  Receive Date: 20241108
  Receipt Date: 20251030
  Transmission Date: 20260118
  Serious: No
  Sender: BRISTOL-MYERS SQUIBB COMPANY
  Company Number: US-BRISTOL-MYERS SQUIBB COMPANY-2024-174816

PATIENT
  Age: 59 Year
  Sex: Female

DRUGS (4)
  1. ORENCIA [Suspect]
     Active Substance: ABATACEPT
     Indication: Rheumatoid arthritis
     Route: 058
     Dates: start: 202404
  2. ORENCIA [Suspect]
     Active Substance: ABATACEPT
     Route: 058
     Dates: start: 202404
  3. ORENCIA [Suspect]
     Active Substance: ABATACEPT
     Route: 058
  4. ORENCIA [Suspect]
     Active Substance: ABATACEPT
     Route: 058
     Dates: start: 202404

REACTIONS (8)
  - General physical health deterioration [Unknown]
  - Pain [Unknown]
  - Rheumatoid arthritis [Unknown]
  - Urticaria [Unknown]
  - Hypersensitivity [Unknown]
  - Immune system disorder [Unknown]
  - Joint swelling [Unknown]
  - Arthralgia [Unknown]
